FAERS Safety Report 18169195 (Version 1)
Quarter: 2020Q3

REPORT INFORMATION
  Report Type: Other
  Country: FR (occurrence: FR)
  Receive Date: 20200819
  Receipt Date: 20200819
  Transmission Date: 20201103
  Serious: Yes (Hospitalization)
  Sender: FDA-Public Use
  Company Number: FR-CADILA HEALTHCARE LIMITED-FR-ZYDUS-049633

PATIENT

DRUGS (1)
  1. AZITHROMYCIN ANHYDROUS. [Suspect]
     Active Substance: AZITHROMYCIN ANHYDROUS
     Indication: LUNG DISORDER
     Dosage: 500 MILLIGRAM, QD (500 MG ON D1 THEN 250 MG / DAY ON D2 AND D3)
     Route: 048
     Dates: start: 20200220, end: 20200222

REACTIONS (3)
  - Thrombocytopenia [Recovering/Resolving]
  - Oral blood blister [Recovering/Resolving]
  - Purpura [Recovering/Resolving]

NARRATIVE: CASE EVENT DATE: 20200222
